FAERS Safety Report 23298024 (Version 1)
Quarter: 2023Q4

REPORT INFORMATION
  Report Type: Spontaneous
  Country: US (occurrence: US)
  Receive Date: 20231214
  Receipt Date: 20231214
  Transmission Date: 20240110
  Serious: Yes (Other)
  Sender: FDA-Public Use
  Company Number: US-BAXTER-2023BAX037836

PATIENT
  Age: 33 Year
  Sex: Male

DRUGS (21)
  1. BORTEZOMIB [Suspect]
     Active Substance: BORTEZOMIB
     Indication: Primary amyloidosis
     Dosage: AFTER THREE CYCLES ACHIEVED COMPLETE HEMATOLOGICAL RESPONSE
     Route: 065
  2. BORTEZOMIB [Suspect]
     Active Substance: BORTEZOMIB
     Indication: Plasma cell myeloma refractory
  3. CYCLOPHOSPHAMIDE [Suspect]
     Active Substance: CYCLOPHOSPHAMIDE
     Indication: Primary amyloidosis
     Dosage: AFTER THREE CYCLES ACHIEVED COMPLETE HEMATOLOGICAL RESPONSE
     Route: 065
  4. CYCLOPHOSPHAMIDE [Suspect]
     Active Substance: CYCLOPHOSPHAMIDE
     Indication: Plasma cell myeloma refractory
     Route: 065
  5. CYCLOPHOSPHAMIDE [Suspect]
     Active Substance: CYCLOPHOSPHAMIDE
     Dosage: BRIDGING THERAPY, WHILE WAITING FOR CILTA-CEL MANUFACTURING
     Route: 065
  6. CYCLOPHOSPHAMIDE [Suspect]
     Active Substance: CYCLOPHOSPHAMIDE
     Dosage: 300 MG/M2 ( LYMPHODEPLETION CHEMOTHERAPY), ON DAYS -5, -4, AND -3
     Route: 065
  7. CARVEDILOL [Concomitant]
     Active Substance: CARVEDILOL
     Indication: Cardiac failure chronic
     Route: 065
  8. LISINOPRIL [Concomitant]
     Active Substance: LISINOPRIL
     Indication: Cardiac failure chronic
     Route: 065
  9. SPIRONOLACTONE [Concomitant]
     Active Substance: SPIRONOLACTONE
     Indication: Cardiac failure chronic
     Route: 065
  10. DEXAMETHASONE [Concomitant]
     Active Substance: DEXAMETHASONE
     Indication: Primary amyloidosis
     Dosage: AFTER THREE CYCLES ACHIEVED COMPLETE HEMATOLOGICAL RESPONSE
     Route: 065
  11. DEXAMETHASONE [Concomitant]
     Active Substance: DEXAMETHASONE
     Indication: Plasma cell myeloma refractory
     Route: 065
  12. DARATUMUMAB [Concomitant]
     Active Substance: DARATUMUMAB
     Indication: Primary amyloidosis
     Dosage: SINGLE-AGENT DARATUMUMAB
     Route: 065
  13. DARATUMUMAB [Concomitant]
     Active Substance: DARATUMUMAB
     Indication: Plasma cell myeloma refractory
  14. VENETOCLAX [Concomitant]
     Active Substance: VENETOCLAX
     Indication: Primary amyloidosis
     Route: 065
  15. VENETOCLAX [Concomitant]
     Active Substance: VENETOCLAX
     Indication: Plasma cell myeloma refractory
  16. IXAZOMIB [Concomitant]
     Active Substance: IXAZOMIB
     Indication: Primary amyloidosis
     Route: 065
  17. IXAZOMIB [Concomitant]
     Active Substance: IXAZOMIB
     Indication: Plasma cell myeloma refractory
     Dosage: BRIDGING THERAPY, WHILE WAITING FOR CILTA-CEL MANUFACTURING
     Route: 065
  18. CILTACABTAGENE AUTOLEUCEL [Concomitant]
     Active Substance: CILTACABTAGENE AUTOLEUCEL
     Indication: Primary amyloidosis
     Dosage: FOUR PRIOR LINES OF CILTA-CEL THERAPY
     Route: 065
  19. CILTACABTAGENE AUTOLEUCEL [Concomitant]
     Active Substance: CILTACABTAGENE AUTOLEUCEL
     Indication: Plasma cell myeloma refractory
     Dosage: INFUSED AT A DOSE OF 0.75 X 10X6 CELLS/KG
     Route: 065
  20. FLUDARABINE [Concomitant]
     Active Substance: FLUDARABINE PHOSPHATE
     Indication: Primary amyloidosis
     Dosage: LYMPHODEPLETION CHEMOTHERAPY 30 MG/M2, ON DAYS -5, -4, AND -3
     Route: 065
  21. FLUDARABINE [Concomitant]
     Active Substance: FLUDARABINE PHOSPHATE
     Indication: Plasma cell myeloma refractory

REACTIONS (2)
  - Cardiotoxicity [Unknown]
  - Cardiac failure congestive [Unknown]
